FAERS Safety Report 5073550-5 (Version None)
Quarter: 2006Q3

REPORT INFORMATION
  Report Type: 
  Country: None (occurrence: None)
  Receive Date: 20060803
  Receipt Date: 20060623
  Transmission Date: 20061208
  Serious: Yes (Other)
  Sender: FDA-Public Use
  Company Number: 510#6#2006-00004

PATIENT
  Age: 54 Year
  Sex: Male

DRUGS (2)
  1. PROSTAVASIN-40UG (ALPROSTADIL (PAOD)) [Suspect]
     Indication: PERIPHERAL ISCHAEMIA
     Dosage: 80 MCG (40 MCG 2 IN 1 DAY(S))
     Route: 041
     Dates: start: 20060606, end: 20060614
  2. DICLOFENAC SODIUM [Concomitant]

REACTIONS (17)
  - ABSCESS [None]
  - ALCOHOLIC [None]
  - ANAEMIA POSTOPERATIVE [None]
  - BLINDNESS UNILATERAL [None]
  - CARDIAC FAILURE [None]
  - CELLULITIS [None]
  - CONGESTIVE CARDIOMYOPATHY [None]
  - FOOT AMPUTATION [None]
  - FOOT FRACTURE [None]
  - GANGRENE [None]
  - HYPERURICAEMIA [None]
  - IMPAIRED HEALING [None]
  - OSTEOLYSIS [None]
  - PAIN [None]
  - PATHOLOGICAL FRACTURE [None]
  - PULMONARY OEDEMA [None]
  - TACHYARRHYTHMIA [None]
